FAERS Safety Report 18484520 (Version 4)
Quarter: 2021Q1

REPORT INFORMATION
  Report Type: Other
  Country: JP (occurrence: JP)
  Receive Date: 20201110
  Receipt Date: 20210121
  Transmission Date: 20210419
  Serious: Yes (Death, Life-Threatening, Hospitalization)
  Sender: FDA-Public Use
  Company Number: JP-ROCHE-2710874

PATIENT
  Age: 46 Year
  Sex: Female
  Weight: 77 kg

DRUGS (20)
  1. PACLITAXEL. [Concomitant]
     Active Substance: PACLITAXEL
     Indication: INVASIVE DUCTAL BREAST CARCINOMA
     Dosage: DOSAGE IS UNCERTAIN.
     Route: 041
     Dates: start: 2020, end: 2020
  2. METGLUCO [Concomitant]
     Active Substance: METFORMIN HYDROCHLORIDE
     Route: 065
     Dates: end: 20200519
  3. MAGMITT [Concomitant]
     Active Substance: MAGNESIUM OXIDE
     Route: 065
     Dates: end: 20200519
  4. FAMOTIDINE. [Concomitant]
     Active Substance: FAMOTIDINE
     Route: 065
     Dates: end: 20200519
  5. LANTUS [Concomitant]
     Active Substance: INSULIN GLARGINE
     Route: 065
     Dates: end: 20200519
  6. MEILAX [Concomitant]
     Active Substance: ETHYL LOFLAZEPATE
     Route: 065
     Dates: end: 20200519
  7. NARUSUS [Concomitant]
     Active Substance: HYDROMORPHONE HYDROCHLORIDE
     Route: 065
  8. LOXOPROFEN [Concomitant]
     Active Substance: LOXOPROFEN
     Route: 065
  9. ACETAMINOPHEN. [Concomitant]
     Active Substance: ACETAMINOPHEN
     Route: 065
  10. NARURAPID [Concomitant]
     Active Substance: HYDROMORPHONE HYDROCHLORIDE
     Route: 065
  11. GLACTIV [Concomitant]
     Active Substance: SITAGLIPTIN
     Route: 065
     Dates: end: 20200519
  12. SHAKUYAKUKANZOTO [Concomitant]
     Active Substance: HERBALS
     Route: 065
     Dates: end: 20200519
  13. AVASTIN [Suspect]
     Active Substance: BEVACIZUMAB
     Indication: INVASIVE DUCTAL BREAST CARCINOMA
     Dosage: DOSAGE IS UNCERTAIN.
     Route: 041
     Dates: start: 202004, end: 202005
  14. DAIMEDIN MULTI [Concomitant]
     Route: 065
     Dates: end: 20200519
  15. MEPTIN AIR [Concomitant]
     Active Substance: PROCATEROL HYDROCHLORIDE
     Route: 065
     Dates: end: 20200519
  16. SYMPROIC [Concomitant]
     Active Substance: NALDEMEDINE
     Route: 065
     Dates: end: 20200519
  17. CONSTANT?T [Concomitant]
     Active Substance: THEOPHYLLINE ANHYDROUS
     Route: 065
     Dates: end: 20200519
  18. LASIX [Concomitant]
     Active Substance: FUROSEMIDE
     Route: 065
     Dates: end: 20200519
  19. SOLITAX?H [Concomitant]
     Route: 065
  20. RINDERON [Concomitant]
     Route: 065
     Dates: end: 20200519

REACTIONS (2)
  - Disease progression [Fatal]
  - Nasal septum perforation [Not Recovered/Not Resolved]

NARRATIVE: CASE EVENT DATE: 20200520
